FAERS Safety Report 9586879 (Version 1)
Quarter: 2013Q4

REPORT INFORMATION
  Report Type: Spontaneous
  Country: US (occurrence: US)
  Receive Date: 20131003
  Receipt Date: 20131003
  Transmission Date: 20140711
  Serious: Yes (Death, Hospitalization, Other)
  Sender: FDA-Public Use
  Company Number: US-VERTEX PHARMACEUTICALS INC-2013-010083

PATIENT
  Sex: Male

DRUGS (1)
  1. INCIVEK [Suspect]
     Indication: CHRONIC HEPATITIS C
     Dosage: UNK
     Dates: start: 20110909, end: 20111107

REACTIONS (20)
  - Respiratory failure [Fatal]
  - Pneumonia [Unknown]
  - Staphylococcal infection [Unknown]
  - Bacteraemia [Unknown]
  - Renal failure acute [Unknown]
  - Stevens-Johnson syndrome [Fatal]
  - Toxic epidermal necrolysis [Unknown]
  - Alopecia [Unknown]
  - Onychomadesis [Unknown]
  - Scar [Unknown]
  - Visual impairment [Unknown]
  - Hypersensitivity [Unknown]
  - Mucous membrane disorder [Unknown]
  - Pigmentation disorder [Unknown]
  - Organ failure [Unknown]
  - Scab [Unknown]
  - Fatigue [Unknown]
  - Rash macular [Unknown]
  - Urticaria [Unknown]
  - Rash pustular [Unknown]
